FAERS Safety Report 8182051-7 (Version None)
Quarter: 2012Q1

REPORT INFORMATION
  Report Type: 
  Country: None (occurrence: None)
  Receive Date: 20120302
  Receipt Date: 20120221
  Transmission Date: 20120608
  Serious: Yes (Hospitalization, Disabling, Other)
  Sender: FDA-Public Use
  Company Number: US-MERCK-0205USA02234

PATIENT
  Age: 59 Year
  Sex: Female
  Weight: 70 kg

DRUGS (9)
  1. PROGESTERONE [Concomitant]
     Route: 065
  2. VIOXX [Concomitant]
     Route: 065
  3. PREMARIN [Concomitant]
     Indication: OSTEOPENIA
     Route: 065
  4. CALCIUM (UNSPECIFIED) [Concomitant]
     Indication: OSTEOPENIA
     Route: 048
  5. FOSAMAX [Suspect]
     Route: 048
     Dates: start: 20010101, end: 20020401
  6. FOSAMAX [Suspect]
     Route: 048
     Dates: start: 20030501, end: 20050401
  7. FEMHRT [Suspect]
     Route: 065
  8. ESTRACE [Suspect]
     Route: 065
  9. FOSAMAX [Suspect]
     Indication: OSTEOPENIA
     Route: 048
     Dates: start: 19960101, end: 20010101

REACTIONS (43)
  - MALIGNANT MELANOMA [None]
  - HYPERTENSION [None]
  - FIBROCYSTIC BREAST DISEASE [None]
  - BREAST CYST [None]
  - CONTUSION [None]
  - HUMERUS FRACTURE [None]
  - STRESS FRACTURE [None]
  - DRUG INTERACTION [None]
  - SEASONAL ALLERGY [None]
  - GINGIVAL RECESSION [None]
  - BURSITIS [None]
  - DRY MOUTH [None]
  - LIMB CRUSHING INJURY [None]
  - BONE LOSS [None]
  - SPINAL OSTEOARTHRITIS [None]
  - BLOOD CHOLESTEROL INCREASED [None]
  - IMPAIRED HEALING [None]
  - HAND FRACTURE [None]
  - TOOTH DISORDER [None]
  - PERIODONTITIS [None]
  - MUSCLE SPASMS [None]
  - STRESS [None]
  - BREAST DISORDER [None]
  - CERVICAL SPINAL STENOSIS [None]
  - LOW TURNOVER OSTEOPATHY [None]
  - CYST [None]
  - FALL [None]
  - LACERATION [None]
  - PAIN IN EXTREMITY [None]
  - MENISCUS LESION [None]
  - TONGUE DISORDER [None]
  - FEMUR FRACTURE [None]
  - HAEMORRHAGE [None]
  - OSTEOPOROSIS [None]
  - JOINT HYPEREXTENSION [None]
  - LOSS OF CONSCIOUSNESS [None]
  - DENTAL CARIES [None]
  - MUSCLE INJURY [None]
  - FRACTURE NONUNION [None]
  - FOOT FRACTURE [None]
  - TOOTH FRACTURE [None]
  - OSTEOARTHRITIS [None]
  - BRUXISM [None]
